FAERS Safety Report 5635164-5 (Version None)
Quarter: 2008Q1

REPORT INFORMATION
  Report Type: 
  Country: None (occurrence: None)
  Receive Date: 20080222
  Receipt Date: 20080214
  Transmission Date: 20080703
  Serious: Yes (Other)
  Sender: FDA-Public Use
  Company Number: CA-ABBOTT-07P-028-0373910-00

PATIENT
  Sex: Female
  Weight: 34.504 kg

DRUGS (11)
  1. HUMIRA [Suspect]
     Indication: RHEUMATOID ARTHRITIS
     Route: 058
     Dates: start: 20070531, end: 20080104
  2. AMLODIPINE [Concomitant]
     Indication: DRUG USE FOR UNKNOWN INDICATION
  3. RAMIPRIL [Concomitant]
     Indication: DRUG USE FOR UNKNOWN INDICATION
  4. VALSARTAN [Concomitant]
     Indication: DRUG USE FOR UNKNOWN INDICATION
  5. PREDNISONE TAB [Concomitant]
     Indication: DRUG USE FOR UNKNOWN INDICATION
  6. PANTOPRAZOLE [Concomitant]
     Indication: DRUG USE FOR UNKNOWN INDICATION
  7. FOLIC ACID [Concomitant]
     Indication: DRUG USE FOR UNKNOWN INDICATION
  8. METHOTREXATE [Concomitant]
     Indication: DRUG USE FOR UNKNOWN INDICATION
  9. HYDROCHLOROTHIAZIDE [Concomitant]
     Indication: DRUG USE FOR UNKNOWN INDICATION
  10. THIORIDAZINE [Concomitant]
     Indication: DRUG USE FOR UNKNOWN INDICATION
  11. OXYCODONE HCL [Concomitant]
     Indication: DRUG USE FOR UNKNOWN INDICATION

REACTIONS (32)
  - ALOPECIA [None]
  - ANGIOPATHY [None]
  - ASTHENIA [None]
  - CACHEXIA [None]
  - EXCORIATION [None]
  - FALL [None]
  - GENERAL PHYSICAL HEALTH DETERIORATION [None]
  - HEAD INJURY [None]
  - IMPAIRED HEALING [None]
  - LIVEDO RETICULARIS [None]
  - MALAISE [None]
  - MOBILITY DECREASED [None]
  - MUSCULAR WEAKNESS [None]
  - MUSCULOSKELETAL CHEST PAIN [None]
  - NAUSEA [None]
  - NODULE ON EXTREMITY [None]
  - OPEN WOUND [None]
  - ORAL INTAKE REDUCED [None]
  - PAIN [None]
  - PAIN IN EXTREMITY [None]
  - PEDAL PULSE DECREASED [None]
  - POOR PERIPHERAL CIRCULATION [None]
  - PULSE ABSENT [None]
  - RECTAL HAEMORRHAGE [None]
  - RESPIRATORY TRACT CONGESTION [None]
  - RIB FRACTURE [None]
  - SKIN DISCOLOURATION [None]
  - SKIN LESION [None]
  - UNEVALUABLE EVENT [None]
  - VOMITING [None]
  - WEIGHT DECREASED [None]
  - WHEEZING [None]
